FAERS Safety Report 15306658 (Version 2)
Quarter: 2018Q4

REPORT INFORMATION
  Report Type: Spontaneous
  Country: US (occurrence: US)
  Receive Date: 20180822
  Receipt Date: 20181226
  Transmission Date: 20190204
  Serious: Yes (Hospitalization, Other)
  Sender: FDA-Public Use
  Company Number: US-GLAXOSMITHKLINE-US2018GSK151827

PATIENT
  Age: 60 Year
  Sex: Male
  Weight: 72 kg

DRUGS (3)
  1. PREVACID [Suspect]
     Active Substance: LANSOPRAZOLE
     Indication: GASTROOESOPHAGEAL REFLUX DISEASE
     Dosage: 40 MG, UNK
     Route: 065
  2. PREVACID [Suspect]
     Active Substance: LANSOPRAZOLE
     Dosage: 15 MG, QD
     Route: 048
  3. PREVACID [Suspect]
     Active Substance: LANSOPRAZOLE
     Indication: GASTROOESOPHAGEAL REFLUX DISEASE
     Dosage: 15 MG, QD
     Route: 065

REACTIONS (12)
  - End stage renal disease [Unknown]
  - Renal transplant [Unknown]
  - Focal segmental glomerulosclerosis [Unknown]
  - Renal artery stenosis [Unknown]
  - Nephrosclerosis [Unknown]
  - Chronic kidney disease [Unknown]
  - Renal cortical necrosis [Unknown]
  - Renal failure [Unknown]
  - Nephrolithiasis [Unknown]
  - Renal cyst [Unknown]
  - Nephrotic syndrome [Unknown]
  - Renal cancer [Unknown]

NARRATIVE: CASE EVENT DATE: 201111
